FAERS Safety Report 23588163 (Version 1)
Quarter: 2024Q1

REPORT INFORMATION
  Report Type: Report from Study
  Country: ZA (occurrence: ZA)
  Receive Date: 20240302
  Receipt Date: 20240302
  Transmission Date: 20240410
  Serious: Yes (Other)
  Sender: FDA-Public Use
  Company Number: ZA-002147023-NVSC2023ZA110217

PATIENT
  Age: 37 Year
  Sex: Female

DRUGS (2)
  1. SIPONIMOD [Suspect]
     Active Substance: SIPONIMOD
     Indication: Secondary progressive multiple sclerosis
     Dosage: 2 MG, EVERY OTHER DAY
     Route: 048
     Dates: start: 20220605
  2. SIPONIMOD [Suspect]
     Active Substance: SIPONIMOD
     Indication: Multiple sclerosis

REACTIONS (11)
  - Influenza [Unknown]
  - Feeling abnormal [Unknown]
  - Bronchitis [Unknown]
  - Dysphonia [Unknown]
  - Haemoptysis [Unknown]
  - Influenza like illness [Unknown]
  - Nasal congestion [Unknown]
  - Oropharyngeal pain [Unknown]
  - Fatigue [Unknown]
  - Cough [Unknown]
  - Lymphadenopathy [Unknown]
